FAERS Safety Report 15607825 (Version 1)
Quarter: 2018Q4

REPORT INFORMATION
  Report Type: Report from Study
  Country: GB (occurrence: GB)
  Receive Date: 20181112
  Receipt Date: 20181112
  Transmission Date: 20190205
  Serious: Yes (Death, Hospitalization, Other)
  Sender: FDA-Public Use
  Company Number: GB-PFIZER INC-2018458166

PATIENT
  Sex: Female

DRUGS (41)
  1. CYCLIZINE HYDROCHLORIDE [Concomitant]
     Active Substance: CYCLIZINE HYDROCHLORIDE
     Dosage: 150 MG, 1X/DAY
     Route: 048
     Dates: start: 20150521, end: 201602
  2. ONDANSETRON [Concomitant]
     Active Substance: ONDANSETRON
     Dosage: 8 MG, UNK
     Route: 048
     Dates: start: 20150729
  3. ONDANSETRON [Concomitant]
     Active Substance: ONDANSETRON
     Dosage: 8 MG, UNK
     Route: 048
     Dates: start: 20150826
  4. DOCETAXEL. [Suspect]
     Active Substance: DOCETAXEL
     Indication: HER-2 POSITIVE BREAST CANCER
     Dosage: 132 MG, EVERY 3 WEEKS
     Route: 042
     Dates: start: 20150519, end: 20150708
  5. DENOSUMAB [Suspect]
     Active Substance: DENOSUMAB
     Dosage: 120 MG, 1X/DAY
     Route: 042
     Dates: start: 20150821, end: 20150821
  6. DENOSUMAB [Suspect]
     Active Substance: DENOSUMAB
     Dosage: 120 MG, 1X/DAY
     Route: 042
     Dates: start: 20150912, end: 20150912
  7. PERTUZUMAB. [Suspect]
     Active Substance: PERTUZUMAB
     Dosage: 420 MG, EVERY 3 WEEKS (MAINTENANCE DOSE)
     Route: 042
     Dates: start: 20150611
  8. DEXAMETHASONE. [Concomitant]
     Active Substance: DEXAMETHASONE
     Dosage: 4 MG, 1X/DAY (4 TABLETS 2 A DAY)
     Route: 048
     Dates: start: 20150610, end: 20150612
  9. DEXAMETHASONE. [Concomitant]
     Active Substance: DEXAMETHASONE
     Dosage: 2 MG, 1X/DAY
     Route: 048
     Dates: start: 20150613, end: 20150704
  10. DEXAMETHASONE. [Concomitant]
     Active Substance: DEXAMETHASONE
     Dosage: UNK
     Route: 048
     Dates: start: 20150729
  11. DEXAMETHASONE. [Concomitant]
     Active Substance: DEXAMETHASONE
     Dosage: 16 MG, 1X/DAY (4 TABLETS)
     Route: 048
     Dates: start: 20160628, end: 20160718
  12. HEPARIN [Concomitant]
     Active Substance: HEPARIN SODIUM
     Dosage: 500 IU IN 5 ML
     Route: 042
     Dates: start: 20150527, end: 20150527
  13. TRASTUZUMAB. [Suspect]
     Active Substance: TRASTUZUMAB
     Dosage: 450 MG, EVERY 3 WEEKS (MAINTENANCE DOSE)
     Route: 042
     Dates: start: 20150611
  14. OXYCODONE [Concomitant]
     Active Substance: OXYCODONE
     Dosage: 10 MG, UNK
     Route: 048
     Dates: start: 20150521
  15. DOCETAXEL. [Suspect]
     Active Substance: DOCETAXEL
     Dosage: 116 MG, EVERY 3 WEEKS
     Route: 042
     Dates: start: 20150708, end: 20150729
  16. TRASTUZUMAB. [Suspect]
     Active Substance: TRASTUZUMAB
     Indication: HER-2 POSITIVE BREAST CANCER
     Dosage: 600 MG, EVERY 3 WEEKS (1 CYCLE)
     Route: 058
     Dates: start: 20150520, end: 20150520
  17. OXYCODONE [Concomitant]
     Active Substance: OXYCODONE
     Dosage: 10 MG, 1X/DAY
     Route: 048
     Dates: start: 20150521
  18. 3M CAVILON ANTIFUNGAL [Concomitant]
     Active Substance: MICONAZOLE NITRATE
     Dosage: 2 DF, 1X/DAY (CAVILON DURABLE BARRIER CREAM APPLIED DURING CHANGING PICC LINE DRESSINGS)
     Route: 061
     Dates: start: 20151028
  19. DOCETAXEL. [Suspect]
     Active Substance: DOCETAXEL
     Dosage: 95 MG, EVERY 3 WEEKS
     Route: 042
     Dates: start: 20150826, end: 20150915
  20. DENOSUMAB [Suspect]
     Active Substance: DENOSUMAB
     Dosage: 120 MG, MONTHLY
     Route: 058
     Dates: start: 20150430
  21. PERTUZUMAB. [Suspect]
     Active Substance: PERTUZUMAB
     Indication: HER-2 POSITIVE BREAST CANCER
     Dosage: 840 MG, SINGLE (LOADING DOSE)
     Route: 042
     Dates: start: 20150518, end: 20150518
  22. DOMPERIDONE [Concomitant]
     Active Substance: DOMPERIDONE
     Indication: MALAISE
     Dosage: 30 MG, 1X/DAY
     Route: 048
     Dates: start: 20150609, end: 20150611
  23. DOMPERIDONE [Concomitant]
     Active Substance: DOMPERIDONE
     Dosage: 30 MG, 1X/DAY
     Route: 048
     Dates: start: 20150912, end: 20150914
  24. DEXAMETHASONE. [Concomitant]
     Active Substance: DEXAMETHASONE
     Dosage: 4 MG, 1X/DAY (4 TABLETS 2 A DAY)
     Route: 048
     Dates: start: 20150912, end: 20150914
  25. SODIUM CHLORIDE. [Concomitant]
     Active Substance: SODIUM CHLORIDE
     Dosage: UNK
     Route: 042
     Dates: start: 20150609, end: 20150609
  26. CYCLIZINE HYDROCHLORIDE [Concomitant]
     Active Substance: CYCLIZINE HYDROCHLORIDE
     Dosage: 150 MG, 1X/DAY
     Route: 048
     Dates: start: 20160627
  27. SANDO K [Concomitant]
     Dosage: 4 DF, 1X/DAY
     Route: 048
     Dates: start: 20150609, end: 20150611
  28. CAPECITABINE. [Suspect]
     Active Substance: CAPECITABINE
     Indication: HER-2 POSITIVE BREAST CANCER
     Dosage: 1 DF, 1X/DAY (1500 MG AND 2000 MG)
     Route: 048
     Dates: start: 20160510, end: 20160531
  29. CAPECITABINE. [Suspect]
     Active Substance: CAPECITABINE
     Dosage: 500 MG, EVERY 3 WEEKS
     Route: 048
     Dates: start: 20160510, end: 20160521
  30. DOMPERIDONE [Concomitant]
     Active Substance: DOMPERIDONE
     Dosage: 30 MG, 1X/DAY
     Route: 048
     Dates: start: 20150727, end: 20150729
  31. DEXAMETHASONE. [Concomitant]
     Active Substance: DEXAMETHASONE
     Dosage: 4 MG, 1X/DAY (4 TABLETS 2 A DAY)
     Route: 048
     Dates: start: 20150821, end: 20150823
  32. ONDANSETRON [Concomitant]
     Active Substance: ONDANSETRON
     Dosage: 8 MG, UNK
     Route: 048
     Dates: start: 20160210
  33. LANSOPRAZOLE. [Concomitant]
     Active Substance: LANSOPRAZOLE
     Dosage: 30 MG, 1X/DAY
     Route: 048
     Dates: start: 20150521
  34. OXYCODONE [Concomitant]
     Active Substance: OXYCODONE
     Dosage: 40 MG, 1X/DAY
     Route: 048
     Dates: start: 20150521
  35. DOMPERIDONE [Concomitant]
     Active Substance: DOMPERIDONE
     Dosage: 10 MG, UNK
     Route: 048
     Dates: start: 20160210
  36. TRASTUZUMAB. [Suspect]
     Active Substance: TRASTUZUMAB
     Indication: HER-2 POSITIVE BREAST CANCER
     Dosage: 600 MG, SINGLE LOADING DOSE (MODIFIED DOSE)
     Route: 042
     Dates: start: 20150518, end: 20150518
  37. LOPERAMIDE [Concomitant]
     Active Substance: LOPERAMIDE
     Dosage: 2 MG, UNK
     Route: 048
     Dates: start: 20150821
  38. DENOSUMAB [Suspect]
     Active Substance: DENOSUMAB
     Indication: HER-2 POSITIVE BREAST CANCER
     Dosage: 120 MG, MONTHLY
     Route: 058
     Dates: start: 20131007, end: 20160616
  39. DENOSUMAB [Suspect]
     Active Substance: DENOSUMAB
     Dosage: 120 MG, 1X/DAY
     Route: 042
     Dates: start: 20150701, end: 20150701
  40. DEXAMETHASONE. [Concomitant]
     Active Substance: DEXAMETHASONE
     Dosage: 4 MG, 1X/DAY (4 TABLETS 2 A DAY)
     Route: 048
     Dates: start: 20150727, end: 20150729
  41. CHLORHEXIDINE GLUCONATE. [Concomitant]
     Active Substance: CHLORHEXIDINE GLUCONATE
     Dosage: 20 ML, 1X/DAY
     Route: 048
     Dates: start: 20150708

REACTIONS (33)
  - Erythema [Recovered/Resolved]
  - Catheter site inflammation [Recovered/Resolved]
  - Decreased appetite [Recovered/Resolved]
  - Rash [Recovered/Resolved]
  - Vomiting [Recovered/Resolved]
  - Breast tenderness [Unknown]
  - Spinal fracture [Not Recovered/Not Resolved]
  - Back pain [Not Recovered/Not Resolved]
  - Cushingoid [Unknown]
  - Neoplasm progression [Fatal]
  - Hypoglycaemia [Recovered/Resolved]
  - Lethargy [Recovered/Resolved]
  - Hypocalcaemia [Recovered/Resolved]
  - Visual impairment [Not Recovered/Not Resolved]
  - Claustrophobia [Unknown]
  - Neuropathy peripheral [Recovered/Resolved]
  - Pruritus [Recovered/Resolved]
  - Vomiting [Recovering/Resolving]
  - Weight increased [Unknown]
  - Hypoglycaemia [Not Recovered/Not Resolved]
  - Pericardial effusion [Not Recovered/Not Resolved]
  - Dry eye [Recovered/Resolved]
  - Palpitations [Unknown]
  - Vomiting [Recovered/Resolved]
  - Impaired gastric emptying [Not Recovered/Not Resolved]
  - Rash erythematous [Not Recovered/Not Resolved]
  - Fatigue [Recovering/Resolving]
  - Eye pruritus [Recovered/Resolved]
  - Malaise [Recovering/Resolving]
  - Vision blurred [Not Recovered/Not Resolved]
  - Nausea [Recovering/Resolving]
  - Eye haemorrhage [Not Recovered/Not Resolved]
  - Anxiety [Not Recovered/Not Resolved]

NARRATIVE: CASE EVENT DATE: 20150521
